FAERS Safety Report 25467388 (Version 1)
Quarter: 2025Q2

REPORT INFORMATION
  Report Type: Spontaneous
  Country: US (occurrence: None)
  Receive Date: 20250621
  Receipt Date: 20250621
  Transmission Date: 20250717
  Serious: Yes (Disabling)
  Sender: FDA-CTU
  Company Number: None

PATIENT
  Age: 77 Year
  Sex: Male
  Weight: 95.85 kg

DRUGS (18)
  1. ZICAM COLD REMEDY NASAL SWABS (HOMEOPATHICS) [Suspect]
     Active Substance: HOMEOPATHICS\ZINC ACETATE\ZINC GLUCONATE
     Indication: Nasopharyngitis
     Dosage: OTHER STRENGTH : SWAB;?FREQUENCY : TWICE A DAY;?
  2. ZICAM COLD REMEDY NASAL SWABS (HOMEOPATHICS) [Suspect]
     Active Substance: HOMEOPATHICS\ZINC ACETATE\ZINC GLUCONATE
     Indication: Influenza
  3. GABAPENTIN [Concomitant]
     Active Substance: GABAPENTIN
  4. walking cane [Concomitant]
  5. rollater [Concomitant]
  6. desvlafaxine [Concomitant]
  7. ATORVASTATIN [Concomitant]
     Active Substance: ATORVASTATIN
  8. Tamsalosin [Concomitant]
  9. NAPROXEN [Concomitant]
     Active Substance: NAPROXEN
  10. LIOTHYRONINE [Concomitant]
     Active Substance: LIOTHYRONINE
  11. LEVOTHYROXINE [Concomitant]
     Active Substance: LEVOTHYROXINE
  12. TADALAFIL [Concomitant]
     Active Substance: TADALAFIL
  13. Zinc. [Concomitant]
  14. MAGNESIUM [Concomitant]
     Active Substance: MAGNESIUM
  15. VITAMIN B COMPLEX [Concomitant]
     Active Substance: CYANOCOBALAMIN\DEXPANTHENOL\NIACINAMIDE\PYRIDOXINE HYDROCHLORIDE\RIBOFLAVIN 5^-PHOSPHATE SODIUM\THIA
  16. mens multivitamin [Concomitant]
  17. VITAMIN D3 [Concomitant]
     Active Substance: CHOLECALCIFEROL
  18. tumeric curcumin [Concomitant]

REACTIONS (5)
  - Vision blurred [None]
  - Dizziness [None]
  - Rhinorrhoea [None]
  - Anosmia [None]
  - Eye pain [None]

NARRATIVE: CASE EVENT DATE: 20250119
